FAERS Safety Report 7802801-6 (Version None)
Quarter: 2011Q4

REPORT INFORMATION
  Report Type: 
  Country: None (occurrence: None)
  Receive Date: 20111007
  Receipt Date: 20110927
  Transmission Date: 20120403
  Serious: Yes (Other)
  Sender: FDA-Public Use
  Company Number: JP-PFIZER INC-2011224311

PATIENT

DRUGS (1)
  1. AMIODARONE HCL [Suspect]
     Dosage: 200 MG, 2X/DAY

REACTIONS (1)
  - PNEUMONIA [None]
